FAERS Safety Report 4350222-3 (Version None)
Quarter: 2004Q2

REPORT INFORMATION
  Report Type: 
  Country: None (occurrence: None)
  Receive Date: 20040428
  Receipt Date: 20040419
  Transmission Date: 20050107
  Serious: Yes (Hospitalization)
  Sender: FDA-Public Use
  Company Number: SEWYE556805FEB04

PATIENT
  Age: 56 Year
  Sex: Male

DRUGS (1)
  1. EFFEXOR [Suspect]
     Indication: ASTHENIA
     Dosage: 75 MG 2X PER 1 DAY
     Route: 048
     Dates: start: 20030801, end: 20040202

REACTIONS (1)
  - CONGESTIVE CARDIOMYOPATHY [None]
